FAERS Safety Report 7407249-4 (Version None)
Quarter: 2011Q2

REPORT INFORMATION
  Report Type: 
  Country: None (occurrence: None)
  Receive Date: 20110411
  Receipt Date: 20110330
  Transmission Date: 20111010
  Serious: Yes (Hospitalization, Other)
  Sender: FDA-Public Use
  Company Number: PHHY2011AT26785

PATIENT
  Age: 34 Year
  Sex: Male

DRUGS (1)
  1. GLEEVEC [Suspect]
     Indication: GASTROINTESTINAL STROMAL TUMOUR
     Dosage: 400 MG, UNK
     Route: 065

REACTIONS (4)
  - FISTULA [None]
  - ILEUS [None]
  - GASTROINTESTINAL INFLAMMATION [None]
  - ABDOMINAL DISCOMFORT [None]
